FAERS Safety Report 6220270-7 (Version None)
Quarter: 2009Q2

REPORT INFORMATION
  Report Type: 
  Country: None (occurrence: None)
  Receive Date: 20090605
  Receipt Date: 20090521
  Transmission Date: 20091009
  Serious: Yes (Hospitalization)
  Sender: FDA-Public Use
  Company Number: 8031202

PATIENT
  Age: 26 Year
  Sex: Female
  Weight: 60 kg

DRUGS (7)
  1. CDP870 [Suspect]
     Indication: RHEUMATOID ARTHRITIS
     Dosage: 200 MG 1/2W SC
     Route: 058
     Dates: start: 20051221, end: 20060607
  2. CDP870 [Suspect]
     Indication: RHEUMATOID ARTHRITIS
     Dosage: 400 MG 1/2W SC
     Route: 058
     Dates: start: 20060607, end: 20071205
  3. CDP870 [Suspect]
     Indication: RHEUMATOID ARTHRITIS
     Dosage: 200 MG 1/2W SC
     Route: 058
     Dates: start: 20071217, end: 20080312
  4. CDP870 [Suspect]
     Indication: RHEUMATOID ARTHRITIS
     Dosage: 200 MG 1/2W SC
     Route: 058
     Dates: start: 20080507
  5. METHOTREXATE [Concomitant]
  6. FOLIC ACID [Concomitant]
  7. FEMINAC [Concomitant]

REACTIONS (17)
  - ACTIVATED PARTIAL THROMBOPLASTIN TIME PROLONGED [None]
  - ANAEMIA [None]
  - ANTIPHOSPHOLIPID ANTIBODIES POSITIVE [None]
  - BACTERIAL INFECTION [None]
  - BLOOD FIBRINOGEN INCREASED [None]
  - CULTURE CERVIX POSITIVE [None]
  - ENDOMETRIOSIS [None]
  - INFERTILITY FEMALE [None]
  - METRORRHAGIA [None]
  - OVARIAN CYST [None]
  - PELVIC INFLAMMATORY DISEASE [None]
  - PLATELET COUNT DECREASED [None]
  - PYREXIA [None]
  - SALPINGO-OOPHORITIS [None]
  - UTERINE CERVICAL EROSION [None]
  - UTERINE HAEMORRHAGE [None]
  - VAGINAL DISCHARGE [None]
